FAERS Safety Report 9060893 (Version 2)
Quarter: 2016Q1

REPORT INFORMATION
  Report Type: Spontaneous
  Country: IL (occurrence: IL)
  Receive Date: 20130212
  Receipt Date: 20160210
  Transmission Date: 20160526
  Serious: Yes (Death, Other)
  Sender: FDA-Public Use
  Company Number: IL-BRISTOL-MYERS SQUIBB COMPANY-17375130

PATIENT
  Age: 33 Year
  Sex: Female

DRUGS (5)
  1. MITOTANE [Suspect]
     Active Substance: MITOTANE
     Indication: ADRENOCORTICAL CARCINOMA
     Dosage: UNK
     Route: 065
  2. VEPESID [Concomitant]
     Active Substance: ETOPOSIDE
     Indication: CHEMOTHERAPY
     Route: 065
  3. BRIPLATIN [Concomitant]
     Active Substance: CISPLATIN
     Indication: CHEMOTHERAPY
     Route: 065
  4. HYDROCORTISONE. [Concomitant]
     Active Substance: HYDROCORTISONE
     Route: 065
  5. DOXORUBICIN [Concomitant]
     Active Substance: DOXORUBICIN
     Indication: CHEMOTHERAPY
     Route: 065

REACTIONS (4)
  - Pulmonary embolism [Fatal]
  - Maternal exposure during pregnancy [Recovered/Resolved]
  - Abortion induced [Unknown]
  - Gastrointestinal disorder [Unknown]
